FAERS Safety Report 5576389-7 (Version None)
Quarter: 2007Q4

REPORT INFORMATION
  Report Type: 
  Country: None (occurrence: None)
  Receive Date: 20071228
  Receipt Date: 20071218
  Transmission Date: 20080405
  Serious: Yes (Hospitalization)
  Sender: FDA-Public Use
  Company Number: BR-BAYER-BR-2007-030894

PATIENT
  Age: 26 Year
  Sex: Female

DRUGS (2)
  1. BETASERON [Suspect]
     Indication: MULTIPLE SCLEROSIS
     Route: 058
     Dates: start: 20070314, end: 20070925
  2. BETASERON [Suspect]
     Route: 058
     Dates: start: 20071025

REACTIONS (6)
  - DYSPNOEA EXERTIONAL [None]
  - FEAR [None]
  - HAEMOPTYSIS [None]
  - INJECTION SITE HAEMATOMA [None]
  - INJECTION SITE PAIN [None]
  - PULMONARY TUBERCULOSIS [None]
